FAERS Safety Report 18471583 (Version 1)
Quarter: 2020Q4

REPORT INFORMATION
  Report Type: Spontaneous
  Country: US (occurrence: US)
  Receive Date: 20201105
  Receipt Date: 20201105
  Transmission Date: 20210114
  Serious: Yes (Other)
  Sender: FDA-Public Use
  Company Number: US-PURDUE PHARMA-USA-2020-0165326

PATIENT
  Sex: Male

DRUGS (4)
  1. MORPHINE SULFATE (SIMILAR TO NDA 19-516) [Suspect]
     Active Substance: MORPHINE SULFATE
     Indication: BACK DISORDER
     Route: 048
  2. OXYCONTIN [Suspect]
     Active Substance: OXYCODONE HYDROCHLORIDE
     Indication: BACK DISORDER
     Dosage: 1-2 TABLET, Q1- 2H
     Route: 048
  3. MORPHINE SULFATE (SIMILAR TO NDA 19-516) [Suspect]
     Active Substance: MORPHINE SULFATE
     Indication: PAIN
  4. OXYCONTIN [Suspect]
     Active Substance: OXYCODONE HYDROCHLORIDE
     Indication: PAIN
     Dosage: 1-2 TABLET, Q8H
     Route: 048

REACTIONS (12)
  - Overdose [Unknown]
  - Drug dependence [Not Recovered/Not Resolved]
  - Cardiac disorder [Unknown]
  - Polydipsia [Unknown]
  - Intervertebral disc degeneration [Unknown]
  - Quality of life decreased [Unknown]
  - Unevaluable event [Unknown]
  - General physical health deterioration [Unknown]
  - Off label use [Unknown]
  - Condition aggravated [Unknown]
  - Dehydration [Unknown]
  - Alcoholism [Unknown]
